FAERS Safety Report 23082459 (Version 2)
Quarter: 2023Q4

REPORT INFORMATION
  Report Type: Spontaneous
  Country: US (occurrence: US)
  Receive Date: 20231019
  Receipt Date: 20231211
  Transmission Date: 20240109
  Serious: Yes (Other)
  Sender: FDA-Public Use
  Company Number: US-GSKCCFUS-Case-01831273_AE-102369

PATIENT

DRUGS (1)
  1. NUCALA [Suspect]
     Active Substance: MEPOLIZUMAB
     Indication: Asthma
     Dosage: 100 MG/ML
     Route: 058
     Dates: start: 20230926

REACTIONS (5)
  - Urinary retention [Unknown]
  - Chest discomfort [Recovered/Resolved]
  - Oedema [Recovering/Resolving]
  - Generalised oedema [Unknown]
  - Back pain [Unknown]
